FAERS Safety Report 25604738 (Version 1)
Quarter: 2025Q3

REPORT INFORMATION
  Report Type: Spontaneous
  Country: JP (occurrence: JP)
  Receive Date: 20250725
  Receipt Date: 20250725
  Transmission Date: 20251021
  Serious: Yes (Death, Other)
  Sender: SPECGX
  Company Number: JP-SPECGX-T202500865

PATIENT
  Age: 7 Decade
  Sex: Male

DRUGS (17)
  1. METHADONE [Suspect]
     Active Substance: METHADONE HYDROCHLORIDE
     Indication: Cancer pain
     Dosage: 15 MILLIGRAM, QD (ON DAY 1)
     Route: 065
  2. METHADONE [Suspect]
     Active Substance: METHADONE HYDROCHLORIDE
     Dosage: 20 MILLIGRAM, QD (ON DAY 10)
     Route: 065
  3. CISPLATIN [Suspect]
     Active Substance: CISPLATIN
     Indication: Oesophageal cancer metastatic
     Route: 065
  4. PACLITAXEL [Suspect]
     Active Substance: PACLITAXEL
     Indication: Oesophageal cancer metastatic
     Route: 065
  5. IRINOTECAN [Suspect]
     Active Substance: IRINOTECAN
     Indication: Oesophageal cancer metastatic
     Route: 065
  6. TRAMADOL [Suspect]
     Active Substance: TRAMADOL
     Indication: Back pain
     Dosage: 75 MILLIGRAM, QD
     Route: 065
  7. MORPHINE [Suspect]
     Active Substance: MORPHINE
     Indication: Back pain
     Dosage: 10 MILLIGRAM, QD
     Route: 065
  8. MORPHINE [Suspect]
     Active Substance: MORPHINE
     Indication: Pain in extremity
     Dosage: 50 MILLIGRAM, QD
     Route: 065
  9. MORPHINE [Suspect]
     Active Substance: MORPHINE
     Indication: Neck pain
     Route: 065
  10. MORPHINE [Suspect]
     Active Substance: MORPHINE
     Dosage: 40 MILLIGRAM, QD (ON DAY 1)
     Route: 065
  11. MORPHINE [Suspect]
     Active Substance: MORPHINE
     Dosage: 30 MILLIGRAM, QD (ON DAY 2)
     Route: 065
  12. MORPHINE [Suspect]
     Active Substance: MORPHINE
     Dosage: 20 MILLIGRAM, QD (ON DAY 3)
     Route: 065
  13. MORPHINE [Suspect]
     Active Substance: MORPHINE
     Dosage: 10 MILLIGRAM, QD (ON DAY 4)
     Route: 065
  14. MORPHINE [Suspect]
     Active Substance: MORPHINE
     Dosage: 10 MILLIGRAM, QD (DAY 7,DISCONTINUED)
     Route: 065
  15. OXYCODONE [Suspect]
     Active Substance: OXYCODONE
     Indication: Back pain
     Route: 065
  16. MORPHINE [Suspect]
     Active Substance: MORPHINE
     Indication: Back pain
     Route: 048
  17. RAMUCIRUMAB [Suspect]
     Active Substance: RAMUCIRUMAB

REACTIONS (8)
  - Haemorrhage [Fatal]
  - Blood pressure decreased [Fatal]
  - Loss of consciousness [Fatal]
  - Malignant neoplasm progression [Fatal]
  - Oesophageal carcinoma [None]
  - Delirium [Unknown]
  - Condition aggravated [Unknown]
  - Incorrect route of product administration [Unknown]
